FAERS Safety Report 10310471 (Version 1)
Quarter: 2014Q3

REPORT INFORMATION
  Report Type: Report from Study
  Country: US (occurrence: US)
  Receive Date: 20140717
  Receipt Date: 20140717
  Transmission Date: 20150326
  Serious: Yes (Death)
  Sender: FDA-Public Use
  Company Number: PHEH2014US014229

PATIENT
  Age: 66 Year
  Sex: Male

DRUGS (5)
  1. CARVEDILOL. [Concomitant]
     Active Substance: CARVEDILOL
     Dosage: UNK UKN, UNK
  2. AMLODIPINE [Concomitant]
     Active Substance: AMLODIPINE BESYLATE
     Dosage: UNK UKN, UNK
  3. AMIDARONE [Concomitant]
     Active Substance: AMIODARONE
     Dosage: UNK UKN, UNK
  4. GLEEVEC [Suspect]
     Active Substance: IMATINIB MESYLATE
     Indication: CHRONIC MYELOID LEUKAEMIA
     Dosage: 200 MG, DAILY
     Route: 048
     Dates: start: 20130716
  5. ENALAPRIL [Concomitant]
     Active Substance: ENALAPRIL
     Dosage: UNK UKN, UNK

REACTIONS (1)
  - Death [Fatal]

NARRATIVE: CASE EVENT DATE: 20140505
